FAERS Safety Report 6966703-X (Version None)
Quarter: 2010Q3

REPORT INFORMATION
  Report Type: 
  Country: None (occurrence: None)
  Receive Date: 20100906
  Receipt Date: 20100830
  Transmission Date: 20110219
  Serious: No
  Sender: FDA-Public Use
  Company Number: US-BIOGENIDEC-2010BI030249

PATIENT
  Age: 44 Year
  Sex: Female

DRUGS (2)
  1. AVONEX [Suspect]
     Indication: MULTIPLE SCLEROSIS
     Route: 030
     Dates: start: 20090427, end: 20090101
  2. AVONEX [Suspect]
     Route: 030
     Dates: start: 20100819

REACTIONS (5)
  - INJECTION SITE IRRITATION [None]
  - NAUSEA [None]
  - PAIN [None]
  - PYREXIA [None]
  - TREMOR [None]
